FAERS Safety Report 12983619 (Version 2)
Quarter: 2017Q2

REPORT INFORMATION
  Report Type: Report from Study
  Country: US (occurrence: US)
  Receive Date: 20161129
  Receipt Date: 20170608
  Transmission Date: 20170830
  Serious: Yes (Other)
  Sender: FDA-Public Use
  Company Number: US-JNJFOC-20161129058

PATIENT
  Sex: Male

DRUGS (7)
  1. VITAMIN B [Concomitant]
     Active Substance: VITAMIN B
  2. TRAMADOL. [Concomitant]
     Active Substance: TRAMADOL
  3. NORVASC [Concomitant]
     Active Substance: AMLODIPINE BESYLATE
  4. IMBRUVICA [Suspect]
     Active Substance: IBRUTINIB
     Indication: CHRONIC LYMPHOCYTIC LEUKAEMIA
     Route: 048
     Dates: start: 20140702
  5. COLACE [Concomitant]
     Active Substance: DOCUSATE SODIUM
  6. IMBRUVICA [Suspect]
     Active Substance: IBRUTINIB
     Indication: CHRONIC LYMPHOCYTIC LEUKAEMIA
     Route: 048
     Dates: start: 20140602
  7. GLUCOSAMINE [Concomitant]
     Active Substance: GLUCOSAMINE

REACTIONS (1)
  - Haemorrhage [Unknown]
